FAERS Safety Report 24665943 (Version 2)
Quarter: 2025Q1

REPORT INFORMATION
  Report Type: Report from Study
  Country: US (occurrence: US)
  Receive Date: 20241126
  Receipt Date: 20250117
  Transmission Date: 20250409
  Serious: Yes (Other)
  Sender: OTSUKA
  Company Number: US-OTSUKA-2024_026892

PATIENT
  Sex: Female

DRUGS (2)
  1. TOLVAPTAN [Suspect]
     Active Substance: TOLVAPTAN
     Indication: Congenital cystic kidney disease
     Route: 065
     Dates: start: 20240820
  2. TOLVAPTAN [Suspect]
     Active Substance: TOLVAPTAN
     Route: 065
     Dates: start: 20240920

REACTIONS (4)
  - Nasal operation [Not Recovered/Not Resolved]
  - Alopecia [Not Recovered/Not Resolved]
  - Polydipsia [Recovered/Resolved]
  - Thirst [Not Recovered/Not Resolved]

NARRATIVE: CASE EVENT DATE: 20240920
